FAERS Safety Report 9789294 (Version 2)
Quarter: 2014Q1

REPORT INFORMATION
  Report Type: Spontaneous
  Country: US (occurrence: US)
  Receive Date: 20131231
  Receipt Date: 20140205
  Transmission Date: 20141002
  Serious: Yes (Death, Hospitalization, Other)
  Sender: FDA-Public Use
  Company Number: US-BAXTER-2013BAX052870

PATIENT
  Sex: Male

DRUGS (4)
  1. DIANEAL LOW CALCIUM [Suspect]
     Indication: RENAL FAILURE CHRONIC
     Dosage: 2 BAGS OF 6 LITERS EACH
     Route: 033
     Dates: start: 2011, end: 20140126
  2. DIANEAL LOW CALCIUM [Suspect]
     Indication: PERITONEAL DIALYSIS
     Dosage: 2 BAGS OF 6 LITERS EACH
     Route: 033
     Dates: start: 2011, end: 20140126
  3. DIANEAL LOW CALCIUM [Suspect]
     Indication: RENAL FAILURE CHRONIC
     Dosage: 2 BAGS OF 6 LITERS EACH
     Route: 033
     Dates: start: 2011, end: 20140126
  4. DIANEAL LOW CALCIUM [Suspect]
     Indication: PERITONEAL DIALYSIS
     Dosage: 2 BAGS OF 6 LITERS EACH
     Route: 033
     Dates: start: 2011, end: 20140126

REACTIONS (5)
  - Sepsis [Fatal]
  - Catheter site infection [Fatal]
  - Culture stool positive [Fatal]
  - Mental status changes [Unknown]
  - Peritoneal cloudy effluent [Unknown]
